FAERS Safety Report 18657332 (Version 1)
Quarter: 2020Q4

REPORT INFORMATION
  Report Type: Spontaneous
  Country: GB (occurrence: GB)
  Receive Date: 20201224
  Receipt Date: 20201224
  Transmission Date: 20210114
  Serious: Yes (Death, Other)
  Sender: FDA-Public Use
  Company Number: GB-TEVA-2020-GB-1851929

PATIENT
  Age: 62 Year
  Sex: Male
  Weight: 104.6 kg

DRUGS (34)
  1. LETERMOVIR [Concomitant]
     Active Substance: LETERMOVIR
     Dosage: 480 MILLIGRAM DAILY;
     Route: 048
     Dates: start: 20200811, end: 20200815
  2. OMEPRAZOLE. [Concomitant]
     Active Substance: OMEPRAZOLE
     Indication: SUPPORTIVE CARE
     Dosage: 20 MILLIGRAM DAILY;
     Route: 048
     Dates: start: 20200803, end: 20200810
  3. URSODEOXYCHOLIC ACID [Concomitant]
     Active Substance: URSODIOL
     Indication: VENOOCCLUSIVE DISEASE
     Dosage: 600 MILLIGRAM DAILY;
     Route: 048
     Dates: start: 20200803, end: 20200907
  4. VITAMIN E [Concomitant]
     Active Substance: .ALPHA.-TOCOPHEROL
     Indication: VENOOCCLUSIVE DISEASE
     Dosage: 402 MILLIGRAM DAILY;
     Route: 048
     Dates: start: 20200803, end: 20200830
  5. METOCLOPRAMIDE. [Concomitant]
     Active Substance: METOCLOPRAMIDE
     Indication: SUPPORTIVE CARE
     Dosage: 30 MILLIGRAM DAILY;
     Route: 048
     Dates: start: 20200803, end: 20200907
  6. MEROPENEM. [Concomitant]
     Active Substance: MEROPENEM
     Indication: BACTERIAL INFECTION
     Dosage: 3 GRAM DAILY;
     Route: 042
     Dates: start: 20200807, end: 20200824
  7. TRANEXAMIC ACID. [Concomitant]
     Active Substance: TRANEXAMIC ACID
     Indication: EPISTAXIS
     Dosage: 2 GRAM DAILY;
     Route: 042
     Dates: start: 20200824, end: 20200830
  8. CLARITHROMYCIN. [Concomitant]
     Active Substance: CLARITHROMYCIN
     Indication: ANTIBIOTIC PROPHYLAXIS
     Dosage: 500 MILLIGRAM DAILY;
     Route: 048
     Dates: start: 20200904, end: 20200910
  9. CIPROFLOXACIN. [Concomitant]
     Active Substance: CIPROFLOXACIN
     Indication: ANTIBIOTIC PROPHYLAXIS
     Dosage: 1000 MILLIGRAM DAILY;
     Route: 048
     Dates: start: 20200818, end: 20200821
  10. MYCOPHENOLATE MOFETIL. [Concomitant]
     Active Substance: MYCOPHENOLATE MOFETIL
     Indication: PROPHYLAXIS AGAINST GRAFT VERSUS HOST DISEASE
     Dosage: 3 GRAM DAILY;
     Route: 042
     Dates: start: 20200816, end: 20200913
  11. SIROLIMUS. [Concomitant]
     Active Substance: SIROLIMUS
     Indication: PROPHYLAXIS AGAINST GRAFT VERSUS HOST DISEASE
     Dosage: 2 MILLIGRAM DAILY;
     Route: 048
     Dates: start: 20200822, end: 20200914
  12. ISAVUCONAZOLE [Concomitant]
     Active Substance: ISAVUCONAZOLE
     Indication: ANTIFUNGAL PROPHYLAXIS
     Dosage: 200 MILLIGRAM DAILY;
     Route: 048
     Dates: start: 20200825, end: 20200914
  13. BUDESONIDE. [Concomitant]
     Active Substance: BUDESONIDE
     Indication: GRAFT VERSUS HOST DISEASE IN GASTROINTESTINAL TRACT
     Dosage: 6 MILLIGRAM DAILY;
     Route: 048
     Dates: start: 20200908, end: 20200912
  14. FLUDARABINE PHOSPHATE. [Suspect]
     Active Substance: FLUDARABINE PHOSPHATE
     Dosage: 67.5 MILLIGRAM DAILY;
     Route: 042
     Dates: start: 20200808, end: 20200809
  15. CYCLOPHOSPHAMIDE. [Suspect]
     Active Substance: CYCLOPHOSPHAMIDE
     Dosage: 4300 MILLIGRAM DAILY;
     Route: 042
     Dates: start: 20200815, end: 20200815
  16. VANCOMYCIN [Concomitant]
     Active Substance: VANCOMYCIN
     Indication: BACTERIAL INFECTION
     Dosage: 1500 MILLIGRAM DAILY;
     Route: 042
     Dates: start: 20200810, end: 20200818
  17. AMLODIPINE [Concomitant]
     Active Substance: AMLODIPINE BESYLATE
     Indication: HYPERTENSION
     Dosage: 5 MILLIGRAM DAILY;
     Route: 048
     Dates: start: 20200822, end: 20200823
  18. FLUDARABINE PHOSPHATE. [Suspect]
     Active Substance: FLUDARABINE PHOSPHATE
     Dosage: 67.5 MILLIGRAM DAILY;
     Route: 042
     Dates: start: 20200805, end: 20200807
  19. OMEPRAZOLE. [Concomitant]
     Active Substance: OMEPRAZOLE
     Dosage: 40 MILLIGRAM DAILY;
     Route: 048
     Dates: start: 20200811, end: 20200914
  20. COTRIMOXAZOLE [Concomitant]
     Active Substance: SULFAMETHOXAZOLE\TRIMETHOPRIM
     Indication: ANTIFUNGAL PROPHYLAXIS
     Dosage: 1920 MILLIGRAM DAILY;
     Route: 048
     Dates: start: 20200803, end: 20200810
  21. ACICLOVIR [Concomitant]
     Active Substance: ACYCLOVIR
     Indication: HERPES SIMPLEX
     Dosage: 800 MILLIGRAM DAILY;
     Route: 048
     Dates: start: 20200803, end: 20200828
  22. FILGRASTIM [Concomitant]
     Active Substance: FILGRASTIM
     Indication: SUPPORTIVE CARE
     Dosage: 480 MICROGRAM DAILY;
     Route: 058
     Dates: start: 20200817, end: 20200906
  23. CYCLOPHOSPHAMIDE. [Suspect]
     Active Substance: CYCLOPHOSPHAMIDE
     Indication: CHEMOTHERAPY
     Dosage: 4300 MILLIGRAM DAILY;
     Route: 042
     Dates: start: 20200814, end: 20200814
  24. LETERMOVIR [Concomitant]
     Active Substance: LETERMOVIR
     Indication: ANTIVIRAL PROPHYLAXIS
     Dosage: 240 MILLIGRAM DAILY;
     Route: 048
     Dates: start: 20200816, end: 20200912
  25. ALLOPURINOL. [Concomitant]
     Active Substance: ALLOPURINOL
     Indication: SUPPORTIVE CARE
     Dosage: 300 MILLIGRAM DAILY;
     Route: 048
     Dates: start: 20200803, end: 20200811
  26. ONDANSETRON [Concomitant]
     Active Substance: ONDANSETRON
     Indication: SUPPORTIVE CARE
     Dosage: 16 MILLIGRAM DAILY;
     Route: 042
     Dates: start: 20200805, end: 20200816
  27. DIPEPTIVEN [Concomitant]
     Active Substance: ALANYL GLUTAMINE
     Indication: VENOOCCLUSIVE DISEASE
     Dosage: 20 MILLIGRAM DAILY;
     Route: 042
     Dates: start: 20200808, end: 20200823
  28. LEVOMEPROMAZINE [Concomitant]
     Active Substance: LEVOMEPROMAZINE
     Indication: SUPPORTIVE CARE
     Dosage: 9 MILLIGRAM DAILY;
     Route: 058
     Dates: start: 20200807, end: 20200809
  29. MESNA. [Concomitant]
     Active Substance: MESNA
     Indication: SUPPORTIVE CARE
     Dosage: 15600 MILLIGRAM DAILY;
     Route: 042
     Dates: start: 20200814, end: 20200815
  30. FLUDARABINE PHOSPHATE. [Suspect]
     Active Substance: FLUDARABINE PHOSPHATE
     Indication: CHEMOTHERAPY
     Dosage: 50MG (25MG/ML) 2ML
     Route: 042
  31. CYCLOPHOSPHAMIDE. [Suspect]
     Active Substance: CYCLOPHOSPHAMIDE
     Dosage: 1248 MILLIGRAM DAILY;
     Route: 042
     Dates: start: 20200805, end: 20200805
  32. APREPITANT. [Concomitant]
     Active Substance: APREPITANT
     Indication: VENOOCCLUSIVE DISEASE
     Dosage: 80 MILLIGRAM DAILY;
     Route: 048
     Dates: start: 20200815, end: 20200816
  33. CICLOSPORIN [Concomitant]
     Active Substance: CYCLOSPORINE
     Indication: PROPHYLAXIS AGAINST GRAFT VERSUS HOST DISEASE
     Dosage: 320 MILLIGRAM DAILY;
     Route: 042
     Dates: start: 20200817, end: 20200821
  34. LOPERAMIDE [Concomitant]
     Active Substance: LOPERAMIDE
     Indication: SUPPORTIVE CARE
     Dosage: 8 MILLIGRAM DAILY;
     Route: 048
     Dates: start: 20200816, end: 20200909

REACTIONS (2)
  - Neurotoxicity [Not Recovered/Not Resolved]
  - Leukoencephalopathy [Fatal]
